FAERS Safety Report 15460726 (Version 2)
Quarter: 2018Q4

REPORT INFORMATION
  Report Type: Spontaneous
  Country: DE (occurrence: DE)
  Receive Date: 20181003
  Receipt Date: 20181011
  Transmission Date: 20190204
  Serious: Yes (Life-Threatening, Other)
  Sender: FDA-Public Use
  Company Number: DE-MYLANLABS-2018M1051911

PATIENT
  Age: 63 Year
  Sex: Male

DRUGS (6)
  1. ETOPOSIDE. [Suspect]
     Active Substance: ETOPOSIDE
     Indication: MIXED ADENONEUROENDOCRINE CARCINOMA
  2. OXALIPLATIN. [Concomitant]
     Active Substance: OXALIPLATIN
     Indication: RECTAL ADENOCARCINOMA
     Dosage: UNK
  3. ETOPOSIDE. [Suspect]
     Active Substance: ETOPOSIDE
     Indication: RECTAL ADENOCARCINOMA
     Dosage: UNK Q3 RECYCLES
  4. CARBOPLATIN. [Suspect]
     Active Substance: CARBOPLATIN
     Indication: MIXED ADENONEUROENDOCRINE CARCINOMA
  5. CARBOPLATIN. [Suspect]
     Active Substance: CARBOPLATIN
     Indication: RECTAL ADENOCARCINOMA
     Dosage: UNK,Q3CYCLES
  6. CAPECITABINE. [Concomitant]
     Active Substance: CAPECITABINE
     Indication: RECTAL ADENOCARCINOMA
     Dosage: UNK

REACTIONS (2)
  - Cerebral haemorrhage [Unknown]
  - Product use in unapproved indication [Unknown]
